FAERS Safety Report 7968414-0 (Version None)
Quarter: 2011Q4

REPORT INFORMATION
  Report Type: 
  Country: None (occurrence: None)
  Receive Date: 20111209
  Receipt Date: 20111205
  Transmission Date: 20120403
  Serious: Yes (Death, Life-Threatening, Hospitalization, Other)
  Sender: FDA-Public Use
  Company Number: US-PFIZER INC-2011151641

PATIENT
  Sex: Female

DRUGS (2)
  1. CHANTIX [Suspect]
     Indication: SMOKING CESSATION THERAPY
     Dosage: UNK
     Route: 048
     Dates: start: 20080701, end: 20080710
  2. CORICIDIN D SRT [Concomitant]
     Indication: BRONCHITIS
     Dosage: UNK
     Dates: start: 20080708, end: 20080710

REACTIONS (3)
  - INTENTIONAL OVERDOSE [None]
  - COMPLETED SUICIDE [None]
  - COMA [None]
